FAERS Safety Report 9007905 (Version 1)
Quarter: 2013Q1

REPORT INFORMATION
  Report Type: Spontaneous
  Country: US (occurrence: US)
  Receive Date: 20130111
  Receipt Date: 20130111
  Transmission Date: 20140127
  Serious: Yes (Hospitalization, Disabling)
  Sender: FDA-Public Use
  Company Number: US-009507513-1301USA004154

PATIENT
  Age: 74 Year
  Sex: Male

DRUGS (4)
  1. SINGULAIR [Suspect]
     Indication: ASTHMA
     Dosage: 1 DF, QD
     Route: 048
  2. SERETIDE [Suspect]
     Indication: ASTHMA
     Dosage: UNK, BID
     Route: 030
  3. AETOXISCLEROL [Suspect]
     Indication: VARICOSE VEIN
     Dosage: 3 ML, UNK
     Route: 042
  4. XYZAL [Suspect]
     Indication: RHINITIS
     Dosage: UNK
     Route: 048

REACTIONS (2)
  - Cutaneous vasculitis [Unknown]
  - Disturbance in attention [Unknown]
